FAERS Safety Report 13472845 (Version 5)
Quarter: 2017Q4

REPORT INFORMATION
  Report Type: Report from Study
  Country: None (occurrence: TR)
  Receive Date: 20170424
  Receipt Date: 20171031
  Transmission Date: 20180320
  Serious: Yes (Hospitalization)
  Sender: FDA-Public Use
  Company Number: TR-ABBVIE-17K-161-1951800-00

PATIENT
  Age: 80 Year
  Sex: Female
  Weight: 53 kg

DRUGS (3)
  1. EXELON PATCH [Concomitant]
     Active Substance: RIVASTIGMINE
     Indication: PARKINSON^S DISEASE
     Route: 062
     Dates: start: 20161202
  2. DUODOPA [Suspect]
     Active Substance: CARBIDOPA\LEVODOPA
     Indication: PARKINSON^S DISEASE
     Dosage: MORNING DOSE : 4.8 ML, CONTINUOUS DOSE: 2.9 ML, EXTRA DOSE: 1.8 ML
     Route: 050
     Dates: start: 20141216, end: 20171024
  3. SEROQUEL [Concomitant]
     Active Substance: QUETIAPINE FUMARATE
     Indication: PARKINSON^S DISEASE
     Dosage: VIA PEG
     Dates: start: 20161202

REACTIONS (7)
  - Blood pressure increased [Recovered/Resolved]
  - Cough [Not Recovered/Not Resolved]
  - Blood sodium decreased [Not Recovered/Not Resolved]
  - Blood sodium decreased [Recovered/Resolved]
  - Dyspnoea [Recovered/Resolved]
  - Blood pressure increased [Recovered/Resolved]
  - Chest pain [Recovered/Resolved]

NARRATIVE: CASE EVENT DATE: 20170419
